FAERS Safety Report 17529877 (Version 1)
Quarter: 2020Q1

REPORT INFORMATION
  Report Type: Report from Study
  Country: MY (occurrence: MY)
  Receive Date: 20200312
  Receipt Date: 20200312
  Transmission Date: 20200409
  Serious: Yes (Life-Threatening, Other)
  Sender: FDA-Public Use
  Company Number: MY-TAKEDA-2019TUS051966

PATIENT
  Age: 33 Year
  Sex: Female

DRUGS (3)
  1. VEDOLIZUMAB [Suspect]
     Active Substance: VEDOLIZUMAB
     Dosage: 300 MILLIGRAM
     Route: 042
  2. AZATHIOPRINE. [Concomitant]
     Active Substance: AZATHIOPRINE
     Dosage: UNK
  3. VEDOLIZUMAB [Suspect]
     Active Substance: VEDOLIZUMAB
     Indication: CROHN^S DISEASE
     Dosage: 300 MILLIGRAM
     Route: 042
     Dates: start: 20190809

REACTIONS (7)
  - Diarrhoea [Unknown]
  - C-reactive protein increased [Unknown]
  - Pelvic fluid collection [Unknown]
  - Anaemia [Unknown]
  - Weight decreased [Unknown]
  - Abdominal pain lower [Recovered/Resolved]
  - Colostomy [Unknown]

NARRATIVE: CASE EVENT DATE: 20190822
